FAERS Safety Report 9554190 (Version 1)
Quarter: 2013Q3

REPORT INFORMATION
  Report Type: Spontaneous
  Country: ES (occurrence: ES)
  Receive Date: 20130925
  Receipt Date: 20130925
  Transmission Date: 20140515
  Serious: Yes (Hospitalization)
  Sender: FDA-Public Use
  Company Number: ES-PFIZER INC-2013271772

PATIENT
  Age: 50 Year
  Sex: Female

DRUGS (2)
  1. DALACIN [Suspect]
     Indication: TOOTHACHE
     Dosage: 150 MG, UNK
     Route: 048
     Dates: start: 20130824, end: 20130829
  2. AUGMENTINE [Suspect]
     Indication: TOOTHACHE
     Dosage: 500/125 MG
     Route: 048
     Dates: start: 20130817, end: 20130824

REACTIONS (3)
  - Enanthema [Unknown]
  - Eye disorder [Unknown]
  - Rash [Unknown]
